FAERS Safety Report 9369031 (Version 1)
Quarter: 2013Q2

REPORT INFORMATION
  Report Type: Report from Study
  Country: BE (occurrence: BE)
  Receive Date: 20130626
  Receipt Date: 20130626
  Transmission Date: 20140414
  Serious: Yes (Hospitalization)
  Sender: FDA-Public Use
  Company Number: PHHY2013BE059334

PATIENT
  Age: 60 Year
  Sex: Male

DRUGS (2)
  1. CGP 57148B [Suspect]
     Indication: ACUTE LYMPHOCYTIC LEUKAEMIA
     Dosage: 600 MG, (400 + 2 X 100 MG) DAILY
     Dates: start: 20130104, end: 20130402
  2. CGP 57148B [Suspect]
     Dosage: 600 MG, (400 + 2 X 100 MG) DAILY
     Dates: start: 20130411, end: 20130429

REACTIONS (2)
  - Septic shock [Recovered/Resolved]
  - Oedema [Unknown]
